FAERS Safety Report 15173403 (Version 2)
Quarter: 2018Q4

REPORT INFORMATION
  Report Type: Spontaneous
  Country: FR (occurrence: FR)
  Receive Date: 20180720
  Receipt Date: 20181115
  Transmission Date: 20190204
  Serious: No
  Sender: FDA-Public Use
  Company Number: FR-BIOVERATIV-2018BV000472

PATIENT
  Age: 23 Year
  Sex: Male
  Weight: 63 kg

DRUGS (2)
  1. OFLOXACINE [Concomitant]
     Active Substance: OFLOXACIN
     Dosage: FOR 10 DAYS
  2. ALPROLIX [Suspect]
     Active Substance: EFTRENONACOG ALFA
     Indication: FACTOR IX DEFICIENCY
     Route: 042
     Dates: start: 20180620

REACTIONS (2)
  - Pyrexia [Recovered/Resolved]
  - Haematuria [Recovered/Resolved]

NARRATIVE: CASE EVENT DATE: 20180621
